FAERS Safety Report 5869632-8 (Version None)
Quarter: 2008Q3

REPORT INFORMATION
  Report Type: 
  Country: None (occurrence: None)
  Receive Date: 20080904
  Receipt Date: 20070924
  Transmission Date: 20090109
  Serious: No
  Sender: FDA-Public Use
  Company Number: US-KINGPHARMUSA00001-K200700215

PATIENT
  Sex: Female
  Weight: 88.889 kg

DRUGS (5)
  1. CYTOMEL [Suspect]
     Indication: HYPOTHYROIDISM
     Dosage: 5 MCG, BID
     Route: 048
     Dates: start: 20060101, end: 20061201
  2. CYTOMEL [Suspect]
     Dosage: 25 MG, BID
     Route: 048
     Dates: start: 20061201, end: 20070101
  3. CYTOMEL [Suspect]
     Dosage: 25 MG, QD
     Route: 048
     Dates: start: 20070101, end: 20070201
  4. CYTOMEL [Suspect]
     Dosage: 5 MG, BID
     Dates: start: 20070201
  5. DYAZIDE [Concomitant]
     Indication: HYPERTENSION
     Dosage: 27/37.5 MG

REACTIONS (14)
  - CARDIAC DISORDER [None]
  - CONSTIPATION [None]
  - DRY SKIN [None]
  - DYSPEPSIA [None]
  - FALL [None]
  - FOOT FRACTURE [None]
  - HEADACHE [None]
  - INCORRECT DOSE ADMINISTERED [None]
  - IRRITABILITY [None]
  - NERVOUSNESS [None]
  - PALPITATIONS [None]
  - PNEUMONIA [None]
  - PSYCHOMOTOR HYPERACTIVITY [None]
  - WEIGHT INCREASED [None]
